FAERS Safety Report 6063339-2 (Version None)
Quarter: 2009Q1

REPORT INFORMATION
  Report Type: 
  Country: None (occurrence: None)
  Receive Date: 20090203
  Receipt Date: 20090126
  Transmission Date: 20090719
  Serious: Yes (Other)
  Sender: FDA-Public Use
  Company Number: US-PFIZER INC-2008155504

PATIENT
  Sex: Male
  Weight: 90.703 kg

DRUGS (9)
  1. NEURONTIN [Suspect]
     Indication: SPINAL CORD INJURY
     Dosage: 300 MG, 3X/DAY
     Dates: start: 20010101
  2. LYRICA [Suspect]
     Indication: SPINAL CORD INJURY
     Dosage: 75 MG, 3X/DAY
     Dates: start: 20081201
  3. PLAVIX [Concomitant]
     Dosage: UNK
  4. SYNTHROID [Concomitant]
     Dosage: UNK
  5. NEXIUM [Concomitant]
     Dosage: UNK
  6. KLOR-CON [Concomitant]
  7. ASPIRIN [Concomitant]
     Dosage: UNK
  8. METOPROLOL [Concomitant]
     Dosage: UNK
  9. FENTANYL [Concomitant]
     Dosage: UNK

REACTIONS (3)
  - COMMUNICATION DISORDER [None]
  - CONFUSIONAL STATE [None]
  - SPEECH DISORDER [None]
